FAERS Safety Report 26079938 (Version 1)
Quarter: 2025Q4

REPORT INFORMATION
  Report Type: Spontaneous
  Country: US (occurrence: US)
  Receive Date: 20251123
  Receipt Date: 20251123
  Transmission Date: 20260118
  Serious: Yes (Other)
  Sender: ALEXION PHARMACEUTICALS
  Company Number: US-AstraZeneca-CH-00994715A

PATIENT
  Age: 20 Year
  Sex: Female

DRUGS (1)
  1. TRUQAP [Suspect]
     Active Substance: CAPIVASERTIB
     Dosage: UNK
     Route: 065

REACTIONS (5)
  - Deafness [Unknown]
  - Diarrhoea [Unknown]
  - Fatigue [Unknown]
  - Blood glucose increased [Unknown]
  - Skin plaque [Unknown]
